FAERS Safety Report 7401044-8 (Version None)
Quarter: 2011Q2

REPORT INFORMATION
  Report Type: 
  Country: None (occurrence: None)
  Receive Date: 20110407
  Receipt Date: 20110404
  Transmission Date: 20111010
  Serious: No
  Sender: FDA-Public Use
  Company Number: US-TEVA-275171USA

PATIENT
  Sex: Female

DRUGS (2)
  1. ORAL CONTRACEPTIVES [Concomitant]
     Indication: CONTRACEPTION
  2. PLAN B ONE-STEP [Suspect]
     Indication: POST COITAL CONTRACEPTION
     Route: 048

REACTIONS (2)
  - MENSTRUATION IRREGULAR [None]
  - PELVIC PAIN [None]
